FAERS Safety Report 9871966 (Version 1)
Quarter: 2014Q1

REPORT INFORMATION
  Report Type: Spontaneous
  Country: US (occurrence: US)
  Receive Date: 20140205
  Receipt Date: 20140205
  Transmission Date: 20141002
  Serious: No
  Sender: FDA-Public Use
  Company Number: US-ALLERGAN-1304959US

PATIENT
  Age: 28 Year
  Sex: Female

DRUGS (6)
  1. BOTOX COSMETIC [Suspect]
     Indication: SKIN WRINKLING
     Dosage: UNK, SINGLE
     Route: 030
     Dates: start: 20130328, end: 20130328
  2. BOTOX COSMETIC [Suspect]
     Indication: SKIN WRINKLING
  3. BOTOX COSMETIC [Suspect]
     Indication: SKIN WRINKLING
  4. HYDROCODONE [Concomitant]
     Indication: ORAL PAIN
  5. DOXYCYCLINE HYCLATE [Concomitant]
     Indication: ORAL INFECTION
  6. LOESTRIN [Concomitant]
     Indication: CONTRACEPTION

REACTIONS (10)
  - Periorbital contusion [Unknown]
  - Chest pain [Unknown]
  - Chest pain [Unknown]
  - Chest pain [Unknown]
  - Dyspepsia [Unknown]
  - Headache [Unknown]
  - Myalgia [Unknown]
  - Myalgia [Unknown]
  - Dysphagia [Unknown]
  - Dyspnoea [Unknown]
